FAERS Safety Report 19435626 (Version 1)
Quarter: 2021Q2

REPORT INFORMATION
  Report Type: Spontaneous
  Country: AU (occurrence: AU)
  Receive Date: 20210618
  Receipt Date: 20210618
  Transmission Date: 20210717
  Serious: Yes (Hospitalization, Other)
  Sender: FDA-Public Use
  Company Number: AU-CELLTRION-2021-AU-000188

PATIENT
  Age: 54 Year
  Sex: Female

DRUGS (9)
  1. DULOXETINE. [Concomitant]
     Active Substance: DULOXETINE
     Dosage: 30 MG DAILY
  2. FUROSEMIDE. [Concomitant]
     Active Substance: FUROSEMIDE
     Dosage: 20 MG DAILY
  3. TAPENTADOL [Suspect]
     Active Substance: TAPENTADOL
     Dosage: 200 MG TWICE DAILY AND 50 MG TWICE DAILY
  4. PROPRANOLOL [Concomitant]
     Active Substance: PROPRANOLOL HYDROCHLORIDE
     Dosage: 40 MG DAILY
  5. ELETRIPTAN. [Concomitant]
     Active Substance: ELETRIPTAN
     Dosage: 80 MG DAILY AS NEEDED
  6. ASPIRIN. [Concomitant]
     Active Substance: ASPIRIN
     Dosage: 100 MG DAILY
  7. AMITRIPTYLINE [Concomitant]
     Active Substance: AMITRIPTYLINE
     Dosage: 50 MG DAILY
  8. AMILORIDE/HYDROCHLOROTHIAZIDE [Concomitant]
     Active Substance: AMILORIDE HYDROCHLORIDE\HYDROCHLOROTHIAZIDE
     Dosage: 5/12.5 MG DAILY
  9. PREGABALIN (NON?SPECIFIC) [Suspect]
     Active Substance: PREGABALIN
     Indication: BACK PAIN
     Dosage: 75 MG TWICE DAILY

REACTIONS (4)
  - Epileptic encephalopathy [Recovered/Resolved]
  - Somnolence [Unknown]
  - Fatigue [Unknown]
  - Agitation [Unknown]
